FAERS Safety Report 17793741 (Version 1)
Quarter: 2020Q2

REPORT INFORMATION
  Report Type: Spontaneous
  Country: GB (occurrence: GB)
  Receive Date: 20200515
  Receipt Date: 20200515
  Transmission Date: 20200714
  Serious: Yes (Other)
  Sender: FDA-Public Use
  Company Number: GB-ALLERGAN-2019223US

PATIENT
  Sex: Female
  Weight: 101.6 kg

DRUGS (1)
  1. PREDNISOLONE UNK [Suspect]
     Active Substance: PREDNISOLONE
     Indication: PRODUCT USED FOR UNKNOWN INDICATION
     Route: 065

REACTIONS (7)
  - Pain of skin [Unknown]
  - Oral herpes [Recovered/Resolved]
  - Abortion spontaneous [Unknown]
  - Steroid withdrawal syndrome [Unknown]
  - Pregnancy [Unknown]
  - Erythema [Not Recovered/Not Resolved]
  - Herpes zoster [Recovering/Resolving]

NARRATIVE: CASE EVENT DATE: 20200323
